FAERS Safety Report 17545678 (Version 2)
Quarter: 2020Q2

REPORT INFORMATION
  Report Type: Spontaneous
  Country: US (occurrence: US)
  Receive Date: 20200316
  Receipt Date: 20200624
  Transmission Date: 20200713
  Serious: Yes (Hospitalization, Other)
  Sender: FDA-Public Use
  Company Number: US-PFIZER INC-2020112472

PATIENT
  Age: 42 Year
  Sex: Female

DRUGS (2)
  1. VENLAFAXINE HCL [Suspect]
     Active Substance: VENLAFAXINE HYDROCHLORIDE
     Dosage: UNK
     Dates: start: 2000
  2. VENLAFAXINE HCL [Suspect]
     Active Substance: VENLAFAXINE HYDROCHLORIDE
     Dosage: 325 MG

REACTIONS (6)
  - Tremor [Unknown]
  - Thrombosis [Unknown]
  - Drug withdrawal syndrome [Unknown]
  - Agitation [Unknown]
  - Chest pain [Unknown]
  - Heart rate increased [Unknown]
